FAERS Safety Report 6701162-3 (Version None)
Quarter: 2010Q2

REPORT INFORMATION
  Report Type: 
  Country: None (occurrence: None)
  Receive Date: 20100428
  Receipt Date: 20100420
  Transmission Date: 20101027
  Serious: Yes (Hospitalization, Other)
  Sender: FDA-Public Use
  Company Number: US-MERCK-1004USA03284

PATIENT
  Age: 70 Year
  Sex: Female

DRUGS (28)
  1. DECADRON [Suspect]
     Indication: MULTIPLE MYELOMA
     Dosage: FOR 3 WEEKS AND 4TH WEEK OFF
     Route: 048
  2. DECADRON [Suspect]
     Route: 048
  3. REVLIMID [Suspect]
     Indication: MULTIPLE MYELOMA
     Dosage: FOR 21 DAYS, OFF FOR 7 DAYS
     Route: 048
     Dates: start: 20070212
  4. MELPHALAN [Suspect]
     Indication: MULTIPLE MYELOMA
     Route: 065
  5. PREDNISONE [Suspect]
     Indication: MULTIPLE MYELOMA
     Route: 065
     Dates: start: 20070301
  6. XELODA [Suspect]
     Indication: EPIGLOTTIC CARCINOMA
     Dosage: MON-FRI
     Route: 065
  7. XELODA [Suspect]
     Indication: PANCREATIC CARCINOMA
     Dosage: MON-FRI
     Route: 065
  8. NEXIUM [Concomitant]
     Route: 048
  9. FENTANYL [Concomitant]
     Indication: COMPLEX REGIONAL PAIN SYNDROME
     Route: 065
  10. FENTANYL [Concomitant]
     Route: 065
  11. MAG OXIDE [Concomitant]
     Route: 065
  12. ADALAT [Concomitant]
     Route: 048
  13. ADALAT [Concomitant]
     Route: 048
  14. ZOCOR [Concomitant]
     Route: 048
  15. ADVAIR DISKUS 100/50 [Concomitant]
     Route: 055
  16. NEUTRA-PHOS [Concomitant]
     Route: 065
  17. PROTONIX [Concomitant]
     Route: 065
  18. SENNA [Concomitant]
     Route: 065
  19. SPIRIVA [Concomitant]
     Route: 055
  20. ALKERAN [Concomitant]
     Route: 065
     Dates: start: 20070501
  21. HYDROCORTISONE [Concomitant]
     Route: 065
  22. TYLENOL-500 [Concomitant]
     Indication: PAIN
     Dosage: Q4HR
     Route: 065
  23. OXYCODONE HCL [Concomitant]
     Indication: PAIN
     Route: 065
  24. COMPAZINE [Concomitant]
     Indication: NAUSEA
     Route: 065
  25. ALBUTEROL [Concomitant]
     Route: 055
  26. COUMADIN [Concomitant]
     Route: 048
  27. ZOMETA [Concomitant]
     Route: 065
  28. DULCOLAX [Concomitant]
     Route: 065

REACTIONS (4)
  - BLOOD POTASSIUM DECREASED [None]
  - CANDIDIASIS [None]
  - DEEP VEIN THROMBOSIS [None]
  - PULMONARY EMBOLISM [None]
